FAERS Safety Report 24133405 (Version 2)
Quarter: 2024Q4

REPORT INFORMATION
  Report Type: Report from Study
  Country: CO (occurrence: CO)
  Receive Date: 20240724
  Receipt Date: 20241204
  Transmission Date: 20250115
  Serious: Yes (Other)
  Sender: IPSEN BIOPHARMACEUTICALS, INC.
  Company Number: CO-IPSEN Group, Research and Development-2024-10033

PATIENT
  Age: 80 Year
  Sex: Female
  Weight: 68 kg

DRUGS (6)
  1. LANREOTIDE ACETATE [Suspect]
     Active Substance: LANREOTIDE ACETATE
     Indication: Neuroendocrine tumour
     Dosage: DEEP SC
     Route: 058
     Dates: start: 20240406
  2. LANREOTIDE ACETATE [Suspect]
     Active Substance: LANREOTIDE ACETATE
     Dosage: DEEP SUBCUTANEOUS
     Route: 058
     Dates: start: 20240706, end: 20241004
  3. LEVOTHYROXINE [Concomitant]
     Active Substance: LEVOTHYROXINE
     Indication: Thyroid disorder
     Dosage: EVERY 24 HOURS
     Route: 048
     Dates: start: 2019
  4. VALSARTAN [Concomitant]
     Active Substance: VALSARTAN
     Indication: Blood pressure abnormal
     Dosage: EVERY 12 HOURS
     Route: 048
     Dates: start: 2021
  5. ROSUVASTATIN [Concomitant]
     Active Substance: ROSUVASTATIN
     Indication: Blood pressure abnormal
     Dosage: EVERY 24 HOURS
     Route: 048
     Dates: start: 202201
  6. UNSPECIFIED INGREDIENT [Concomitant]
     Active Substance: UNSPECIFIED INGREDIENT
     Indication: Constipation
     Dates: end: 20240415

REACTIONS (4)
  - Diabetic metabolic decompensation [Unknown]
  - Abdominal pain [Not Recovered/Not Resolved]
  - Blood glucose increased [Not Recovered/Not Resolved]
  - Product administered at inappropriate site [Not Recovered/Not Resolved]

NARRATIVE: CASE EVENT DATE: 20240506
